FAERS Safety Report 7034058-0 (Version None)
Quarter: 2010Q4

REPORT INFORMATION
  Report Type: 
  Country: None (occurrence: None)
  Receive Date: 20101006
  Receipt Date: 20100922
  Transmission Date: 20110411
  Serious: Yes (Hospitalization)
  Sender: FDA-Public Use
  Company Number: 2010-3219

PATIENT
  Age: 43 Year
  Sex: Male

DRUGS (7)
  1. SOMATULINE DEPOT [Suspect]
     Indication: CROHN'S DISEASE
     Dosage: 90MG (90 MG, 1 IN 4 WK), INTRAMUSCULAR
     Route: 030
     Dates: start: 20070611
  2. SOMATULINE DEPOT [Suspect]
     Indication: LYMPHOMA
     Dosage: 90MG (90 MG, 1 IN 4 WK), INTRAMUSCULAR
     Route: 030
     Dates: start: 20070611
  3. SOMATULINE DEPOT [Suspect]
     Indication: SPLENOMEGALY
     Dosage: 90MG (90 MG, 1 IN 4 WK), INTRAMUSCULAR
     Route: 030
     Dates: start: 20070611
  4. LOPERAMIDE (LOPERAMIDE) [Concomitant]
  5. OMEPRAZOLE [Concomitant]
  6. QUESTRAN [Concomitant]
  7. SPIRONOLACTONE [Concomitant]

REACTIONS (5)
  - HAEMATEMESIS [None]
  - HAEMOGLOBIN DECREASED [None]
  - HAEMORRHAGE [None]
  - OFF LABEL USE [None]
  - VARICES OESOPHAGEAL [None]
